FAERS Safety Report 8713962 (Version 2)
Quarter: 2012Q4

REPORT INFORMATION
  Report Type: 
  Country: JP (occurrence: JP)
  Receive Date: 20120808
  Receipt Date: 20120831
  Transmission Date: 20130627
  Serious: Yes (Hospitalization)
  Sender: FDA-Public Use
  Company Number: JP-B.I. PHARMACEUTICALS,INC./RIDGEFIELD-2012-BP-17573NB

PATIENT
  Age: 72 Year
  Sex: Male
  Weight: 46.4 kg

DRUGS (21)
  1. BI-SIFROL [Suspect]
     Indication: RESTLESS LEGS SYNDROME
     Dosage: 0.125 mg
     Route: 048
     Dates: start: 20120726, end: 20120729
  2. MAINTATE [Concomitant]
     Indication: LEFT VENTRICULAR FAILURE
     Dosage: 0.625 mg
     Route: 048
  3. SAWATENE [Concomitant]
     Indication: EMPHYSEMA
     Dosage: 1500 mg
     Route: 048
  4. AMBROXOL HYDROCHLORIDE [Concomitant]
     Indication: EMPHYSEMA
     Dosage: 45 mg
     Route: 048
  5. RENIVEZE [Concomitant]
     Indication: LEFT VENTRICULAR FAILURE
     Dosage: 1.25 mg
     Route: 048
  6. ALDACTONE A [Concomitant]
     Indication: LEFT VENTRICULAR FAILURE
     Dosage: 25 mg
     Route: 048
  7. CRESTOR [Concomitant]
     Indication: CORONARY ARTERY STENOSIS
     Dosage: 2.5 mg
     Route: 048
  8. TAKEPRON [Concomitant]
     Dosage: 30 mg
     Route: 048
  9. BAYASPIRIN [Concomitant]
     Indication: CORONARY ARTERY STENOSIS
     Dosage: 100 mg
     Route: 048
  10. LASIX [Concomitant]
     Indication: LEFT VENTRICULAR FAILURE
     Dosage: 20 mg
     Route: 048
  11. PLAVIX [Concomitant]
     Indication: CORONARY ARTERY STENOSIS
     Dosage: 75 mg
     Route: 048
  12. URIEF [Concomitant]
     Dosage: 8 mg
     Route: 048
  13. FOLIAMIN [Concomitant]
     Indication: ANAEMIA
     Dosage: 15 mg
     Route: 048
     Dates: start: 20120724
  14. MAGMITT [Concomitant]
     Indication: CONSTIPATION
     Dosage: 990 mg
     Route: 048
  15. UNICON [Concomitant]
     Indication: EMPHYSEMA
     Dosage: 400 mg
     Route: 048
  16. WARFARIN [Concomitant]
     Dosage: 1 mg
     Route: 048
  17. ZOPICOOL [Concomitant]
     Indication: INSOMNIA
     Dosage: 7.5 mg
     Route: 048
  18. FORSENID [Concomitant]
     Dosage: 24 mg
     Route: 048
  19. ADOAIR [Concomitant]
     Dosage: 500 mcg
     Route: 055
  20. SPIRIVA [Concomitant]
     Dosage: 2.5 mcg
     Route: 055
  21. ROPINIROLE HYDROCHLORIDE [Concomitant]

REACTIONS (6)
  - Blood creatine phosphokinase increased [Not Recovered/Not Resolved]
  - Asthenia [Recovered/Resolved]
  - Gait disturbance [Recovered/Resolved]
  - Fall [Unknown]
  - Myalgia [Unknown]
  - Headache [Unknown]
